FAERS Safety Report 8444821-7 (Version None)
Quarter: 2012Q2

REPORT INFORMATION
  Report Type: 
  Country: None (occurrence: None)
  Receive Date: 20120611
  Receipt Date: 20120531
  Transmission Date: 20120825
  Serious: Yes (Disabling, Other)
  Sender: FDA-Public Use
  Company Number: 2010MA004403

PATIENT
  Sex: Female
  Weight: 86.1834 kg

DRUGS (37)
  1. METOCLOPRAMIDE [Suspect]
     Indication: GASTROOESOPHAGEAL REFLUX DISEASE
     Dosage: 10 MG;TID;PO
     Route: 048
     Dates: start: 20060725, end: 20080101
  2. METOCLOPRAMIDE [Suspect]
     Indication: NAUSEA
     Dosage: 10 MG;TID;PO
     Route: 048
     Dates: start: 20060725, end: 20080101
  3. AZITHROMYCIN [Concomitant]
  4. PAXIL [Concomitant]
  5. SENNA-MINT WAF [Concomitant]
  6. ULTRACET [Concomitant]
  7. VITAMIN B-12 [Concomitant]
  8. HYDROCHLOROTHIAZIDE [Concomitant]
  9. LISINOPRIL [Concomitant]
  10. NABUMETONE [Concomitant]
  11. NORVASC [Concomitant]
  12. ZOFRAN [Concomitant]
  13. AMLODIPINE [Concomitant]
  14. CAPTOPRIL [Concomitant]
  15. COMPAZINE [Concomitant]
  16. METOPROLOL [Concomitant]
  17. PROVENTIL [Concomitant]
  18. ZOLOFT [Concomitant]
  19. CAPOZIDE 25/15 [Concomitant]
  20. CLINDAMYCIN [Concomitant]
  21. GLIPIZIDE [Concomitant]
  22. NASACORT [Concomitant]
  23. PRILOSEC [Concomitant]
  24. RELAFEN [Concomitant]
  25. ZANTAC [Concomitant]
  26. ASPIRIN [Concomitant]
  27. BACLOFEN [Concomitant]
  28. GLUCOTROL [Concomitant]
  29. M.V.I. [Concomitant]
  30. NEURONTIN [Concomitant]
  31. NEXIUM [Concomitant]
  32. PILOCARPINE [Concomitant]
  33. XANAX [Concomitant]
  34. ADVAIR DISKUS 100/50 [Concomitant]
  35. TOPROL-XL [Concomitant]
  36. IRON SUPPLEMENT [Concomitant]
  37. TEKTURNA [Concomitant]

REACTIONS (44)
  - WEIGHT DECREASED [None]
  - PARKINSONISM [None]
  - ASTHENIA [None]
  - FAILURE TO THRIVE [None]
  - RESTLESS LEGS SYNDROME [None]
  - DEMENTIA [None]
  - HEADACHE [None]
  - PYOGENIC GRANULOMA [None]
  - NAUSEA [None]
  - GRIEF REACTION [None]
  - AMNESIA [None]
  - COUGH [None]
  - EMOTIONAL DISORDER [None]
  - AXONAL NEUROPATHY [None]
  - DYSPHAGIA [None]
  - SINUSITIS [None]
  - EXTRAPYRAMIDAL DISORDER [None]
  - FIBROMA [None]
  - MYOPATHY [None]
  - DIZZINESS [None]
  - VASCULITIS [None]
  - AKATHISIA [None]
  - IMPAIRED GASTRIC EMPTYING [None]
  - VENOUS INSUFFICIENCY [None]
  - HEPATIC CYST [None]
  - TARDIVE DYSKINESIA [None]
  - PAIN IN EXTREMITY [None]
  - GASTRIC POLYPS [None]
  - SJOGREN'S SYNDROME [None]
  - FALL [None]
  - CARPAL TUNNEL SYNDROME [None]
  - CHOREA [None]
  - CEREBROVASCULAR ACCIDENT [None]
  - ECONOMIC PROBLEM [None]
  - DEAFNESS NEUROSENSORY [None]
  - PERIORBITAL OEDEMA [None]
  - DECREASED APPETITE [None]
  - BLOOD CHOLESTEROL INCREASED [None]
  - MUSCLE SPASMS [None]
  - DRY MOUTH [None]
  - ADJUSTMENT DISORDER [None]
  - ANXIETY [None]
  - HYPERSOMNIA [None]
  - BRONCHITIS [None]
